FAERS Safety Report 14264702 (Version 3)
Quarter: 2018Q2

REPORT INFORMATION
  Report Type: Spontaneous
  Country: US (occurrence: US)
  Receive Date: 20171208
  Receipt Date: 20180426
  Transmission Date: 20180711
  Serious: No
  Sender: FDA-Public Use
  Company Number: US-VIFOR (INTERNATIONAL) INC.-VIT-2017-09153

PATIENT
  Sex: Female

DRUGS (22)
  1. URSODIOL. [Concomitant]
     Active Substance: URSODIOL
  2. CITRACAL PETITES/VITAMIN D [Concomitant]
  3. CARVEDILOL. [Concomitant]
     Active Substance: CARVEDILOL
  4. PLAQUENIL [Concomitant]
     Active Substance: HYDROXYCHLOROQUINE SULFATE
  5. XANAX [Concomitant]
     Active Substance: ALPRAZOLAM
  6. COLACE CLEAR [Concomitant]
     Active Substance: DOCUSATE SODIUM
  7. ARANESP [Concomitant]
     Active Substance: DARBEPOETIN ALFA
  8. FIBERCON [Concomitant]
     Active Substance: CALCIUM POLYCARBOPHIL
  9. ZYRTEC [Concomitant]
     Active Substance: CETIRIZINE HYDROCHLORIDE
  10. ACETYLSALICYLIC ACID [Concomitant]
     Active Substance: ASPIRIN
  11. PROLIA [Concomitant]
     Active Substance: DENOSUMAB
  12. SIMVASTATIN. [Concomitant]
     Active Substance: SIMVASTATIN
  13. SODIUM BICARBONATE. [Concomitant]
     Active Substance: SODIUM BICARBONATE
  14. CELEXA [Concomitant]
     Active Substance: CITALOPRAM HYDROBROMIDE
  15. DICYCLOVERINE HYDROCHLORIDE [Concomitant]
     Active Substance: DICYCLOMINE HYDROCHLORIDE
  16. OMEPRAZOLE. [Concomitant]
     Active Substance: OMEPRAZOLE
  17. TRAZODONE HYDROCHLORIDE. [Concomitant]
     Active Substance: TRAZODONE HYDROCHLORIDE
  18. VELTASSA [Suspect]
     Active Substance: PATIROMER
     Indication: HYPERKALAEMIA
     Route: 048
     Dates: start: 20170224
  19. FOLIC ACID. [Concomitant]
     Active Substance: FOLIC ACID
  20. CALCITRIOL. [Concomitant]
     Active Substance: CALCITRIOL
  21. VELTASSA [Suspect]
     Active Substance: PATIROMER
     Route: 048
  22. MELATONIN [Concomitant]
     Active Substance: MELATONIN

REACTIONS (4)
  - Off label use [Unknown]
  - Urinary tract infection [Unknown]
  - Gastrointestinal disorder [Unknown]
  - Influenza [Recovered/Resolved]
